FAERS Safety Report 6336875-9 (Version None)
Quarter: 2009Q3

REPORT INFORMATION
  Report Type: 
  Country: None (occurrence: None)
  Receive Date: 20090901
  Receipt Date: 20090820
  Transmission Date: 20100115
  Serious: Yes (Hospitalization)
  Sender: FDA-Public Use
  Company Number: PHHY2009GB35501

PATIENT
  Sex: Male

DRUGS (4)
  1. CLOZARIL [Suspect]
     Indication: SCHIZOPHRENIA
     Dosage: UNK
     Dates: start: 20040708, end: 20090813
  2. CLOZARIL [Suspect]
     Dosage: 450 MG
     Dates: start: 20090820
  3. RISPERIDONE [Concomitant]
     Dosage: UNK
     Dates: start: 20090813
  4. LORAZEPAM [Concomitant]
     Dosage: UNK
     Dates: start: 20090813

REACTIONS (5)
  - OBESITY [None]
  - RASH [None]
  - SEDATION [None]
  - SLEEP APNOEA SYNDROME [None]
  - SOMNOLENCE [None]
